FAERS Safety Report 8811324 (Version 2)
Quarter: 2012Q4

REPORT INFORMATION
  Report Type: 
  Country: JP (occurrence: JP)
  Receive Date: 20120927
  Receipt Date: 20121031
  Transmission Date: 20130627
  Serious: Yes (Hospitalization, Other)
  Sender: FDA-Public Use
  Company Number: JP-ELI_LILLY_AND_COMPANY-JP201209000683

PATIENT
  Age: 38 Year
  Sex: Male
  Weight: 55 kg

DRUGS (5)
  1. ZYPREXA [Suspect]
     Indication: SCHIZOPHRENIA
     Dosage: 20 mg, UNK
     Route: 048
     Dates: start: 20071116, end: 20071116
  2. ZYPREXA [Suspect]
     Dosage: 10 mg, qd
     Route: 048
     Dates: start: 20071117, end: 20120914
  3. SEROQUEL [Concomitant]
     Indication: SCHIZOPHRENIA
     Dosage: 600 mg, UNK
     Route: 048
     Dates: start: 20091002
  4. LONASEN [Concomitant]
     Indication: SCHIZOPHRENIA
     Dosage: 8 mg, UNK
     Route: 048
     Dates: start: 20101218
  5. RISPERDAL [Concomitant]
     Indication: SCHIZOPHRENIA
     Dosage: 50 mg, UNK
     Route: 030
     Dates: start: 20100304

REACTIONS (2)
  - Schizophrenia [Recovered/Resolved]
  - Hyperglycaemia [Recovering/Resolving]
